FAERS Safety Report 9193281 (Version 1)
Quarter: 2013Q1

REPORT INFORMATION
  Report Type: Spontaneous
  Country: US (occurrence: US)
  Receive Date: 20130327
  Receipt Date: 20130327
  Transmission Date: 20140127
  Serious: No
  Sender: FDA-Public Use
  Company Number: US-BAYER-2013-037468

PATIENT
  Sex: Female

DRUGS (10)
  1. BETASERON [Suspect]
     Dosage: 0.3 MG, QOD
     Route: 058
  2. PREMARIN [Concomitant]
     Dosage: 0.3 MG, UNK
  3. VITAMIN E [Concomitant]
     Dosage: 1000 U, UNK
  4. FISH OIL [Concomitant]
  5. VITAMIN D [Concomitant]
     Dosage: 1000 U, UNK
  6. VITAMIN C [Concomitant]
     Dosage: 500 MG, UNK
  7. MULTIVITAMIN [Concomitant]
  8. CALCIUM +VIT D [Concomitant]
  9. VITAMIN-B-KOMPLEX STANDARD [Concomitant]
  10. MELATONIN [Concomitant]
     Dosage: 1 MG, UNK

REACTIONS (2)
  - Paraesthesia [Unknown]
  - Hypoaesthesia [Unknown]
